FAERS Safety Report 4595003-0 (Version None)
Quarter: 2005Q1

REPORT INFORMATION
  Report Type: 
  Country: None (occurrence: None)
  Receive Date: 20050224
  Receipt Date: 20030909
  Transmission Date: 20050727
  Serious: Yes (Disabling)
  Sender: FDA-Public Use
  Company Number: GXKR2003GB00625

PATIENT
  Age: 40 Year
  Sex: Female
  Weight: 60 kg

DRUGS (3)
  1. DIAZEPAM [Suspect]
     Indication: INSOMNIA
     Dosage: 5 MG, ORAL
     Route: 048
     Dates: start: 20030814, end: 20030817
  2. SERTRALINE HCL [Suspect]
     Indication: DEPRESSION
     Dosage: 50 MG, ORAL
     Route: 048
     Dates: start: 20030806
  3. CITALOPRAM       (CITALOPRAM) [Concomitant]

REACTIONS (4)
  - ASTHENIA [None]
  - CIRCULATORY COLLAPSE [None]
  - DIFFICULTY IN WALKING [None]
  - DRUG INTERACTION [None]
